FAERS Safety Report 8902707 (Version 1)
Quarter: 2012Q4

REPORT INFORMATION
  Report Type: Report from Study
  Country: US (occurrence: US)
  Receive Date: 20121112
  Receipt Date: 20121112
  Transmission Date: 20130627
  Serious: Yes (Hospitalization, Other)
  Sender: FDA-Public Use
  Company Number: US-PURDUE-USA-2012-0095436

PATIENT
  Sex: Female

DRUGS (3)
  1. OXYCONTIN (NDA 22-272) [Suspect]
     Indication: PAIN
     Dosage: 40 mg, tid
     Route: 048
     Dates: end: 2012
  2. OXYCONTIN (NDA 22-272) [Suspect]
     Dosage: 20 mg, AM
     Route: 048
  3. OXYCONTIN (NDA 22-272) [Suspect]
     Dosage: 10 mg, bid
     Route: 048

REACTIONS (6)
  - Respiratory failure [Unknown]
  - Cellulitis [Unknown]
  - Pain [Unknown]
  - Pneumonia aspiration [Unknown]
  - Aspiration [Unknown]
  - Sedation [Unknown]
